FAERS Safety Report 16680353 (Version 2)
Quarter: 2019Q3

REPORT INFORMATION
  Report Type: Spontaneous
  Country: JP (occurrence: JP)
  Receive Date: 20190807
  Receipt Date: 20190916
  Transmission Date: 20191004
  Serious: Yes (Hospitalization)
  Sender: FDA-Public Use
  Company Number: PHJP2019JP009956

PATIENT
  Age: 25 Year
  Sex: Male

DRUGS (2)
  1. TAFINLAR [Suspect]
     Active Substance: DABRAFENIB MESYLATE
     Indication: MALIGNANT MELANOMA
     Dosage: 300 MG, UNK
     Route: 048
     Dates: start: 20190625, end: 20190716
  2. MEKINIST [Suspect]
     Active Substance: TRAMETINIB DIMETHYL SULFOXIDE
     Indication: MALIGNANT MELANOMA
     Dosage: 2 MG, UNK
     Route: 048
     Dates: start: 20190625, end: 20190716

REACTIONS (5)
  - Fibrin D dimer increased [Recovered/Resolved]
  - Inflammation [Recovered/Resolved]
  - Pyrexia [Unknown]
  - Coagulopathy [Recovered/Resolved]
  - Fibrin degradation products increased [Unknown]

NARRATIVE: CASE EVENT DATE: 20190716
